FAERS Safety Report 23956411 (Version 1)
Quarter: 2024Q2

REPORT INFORMATION
  Report Type: Spontaneous
  Country: US (occurrence: US)
  Receive Date: 20240610
  Receipt Date: 20240610
  Transmission Date: 20240716
  Serious: Yes (Other)
  Sender: FDA-Public Use
  Company Number: US-MYLANLABS-2024M1052174

PATIENT
  Age: 46 Year
  Sex: Female

DRUGS (11)
  1. CISPLATIN [Suspect]
     Active Substance: CISPLATIN
     Indication: Adrenocortical carcinoma
     Dosage: UNK UNK, CYCLE
     Route: 065
  2. CISPLATIN [Suspect]
     Active Substance: CISPLATIN
     Indication: Metastatic neoplasm
  3. ETOPOSIDE [Suspect]
     Active Substance: ETOPOSIDE
     Indication: Adrenocortical carcinoma
     Dosage: UNK, CYCLE
     Route: 065
  4. ETOPOSIDE [Suspect]
     Active Substance: ETOPOSIDE
     Indication: Metastatic neoplasm
  5. DOXORUBICIN [Suspect]
     Active Substance: DOXORUBICIN
     Indication: Adrenocortical carcinoma
     Dosage: UNK, CYCLE
     Route: 065
  6. DOXORUBICIN [Suspect]
     Active Substance: DOXORUBICIN
     Indication: Metastatic neoplasm
  7. MITOTANE [Suspect]
     Active Substance: MITOTANE
     Indication: Adrenocortical carcinoma
     Dosage: UNK, CYCLE
     Route: 048
  8. MITOTANE [Suspect]
     Active Substance: MITOTANE
     Indication: Metastatic neoplasm
  9. PEMBROLIZUMAB [Suspect]
     Active Substance: PEMBROLIZUMAB
     Indication: Adrenocortical carcinoma
     Dosage: UNK, CYCLE, INFUSION
     Route: 065
  10. PEMBROLIZUMAB [Suspect]
     Active Substance: PEMBROLIZUMAB
     Indication: Metastatic neoplasm
     Dosage: UNK, CYCLE,  RECEIVED AN ADDITIONAL THREE CYCLES, WAS DISCONTINUED AFTER FOURTH CYCLE
     Route: 065
  11. PEMBROLIZUMAB [Suspect]
     Active Substance: PEMBROLIZUMAB
     Dosage: UNK UNK, CYCLE, RECHALLENGE WAS DONE
     Route: 065

REACTIONS (2)
  - Neuropathy peripheral [Unknown]
  - Drug ineffective [Unknown]
